FAERS Safety Report 7504997-2 (Version None)
Quarter: 2011Q2

REPORT INFORMATION
  Report Type: 
  Country: None (occurrence: None)
  Receive Date: 20110526
  Receipt Date: 20110517
  Transmission Date: 20111010
  Serious: No
  Sender: FDA-Public Use
  Company Number: US-BIOGENIDEC-2011BI016145

PATIENT
  Age: 48 Year
  Sex: Female

DRUGS (2)
  1. TYSABRI [Suspect]
     Indication: MULTIPLE SCLEROSIS
     Route: 042
     Dates: start: 20100920
  2. TYSABRI [Suspect]
     Route: 042
     Dates: start: 20090623, end: 20100414

REACTIONS (7)
  - BLOOD PRESSURE INCREASED [None]
  - NASAL DISCOMFORT [None]
  - OXYGEN SATURATION DECREASED [None]
  - HEART RATE INCREASED [None]
  - COUGH [None]
  - PRURITUS [None]
  - DYSPNOEA [None]
